FAERS Safety Report 4649750-2 (Version None)
Quarter: 2005Q2

REPORT INFORMATION
  Report Type: 
  Country: None (occurrence: None)
  Receive Date: 20050427
  Receipt Date: 20050414
  Transmission Date: 20051028
  Serious: Yes (Hospitalization)
  Sender: FDA-Public Use
  Company Number: 05P-163-0297355-00

PATIENT
  Age: 64 Year
  Sex: Female
  Weight: 96 kg

DRUGS (15)
  1. HUMIRA [Suspect]
     Indication: RHEUMATOID ARTHRITIS
     Dosage: 40 MG, 1 IN 2 WK, SUBCUTANEOUS
     Route: 058
     Dates: start: 20040101, end: 20041001
  2. HUMIRA [Suspect]
     Indication: RHEUMATOID ARTHRITIS
     Dosage: 40 MG, 1 IN 2 WK, SUBCUTANEOUS
     Route: 058
     Dates: start: 20041101
  3. METHOTREXATE SODIUM [Concomitant]
  4. FOLIC ACID [Concomitant]
  5. HYZAAR [Concomitant]
  6. CETIRIZINE HCL [Concomitant]
  7. LANSOPRAZOLE [Concomitant]
  8. FLUVASTATIN SODIUM [Concomitant]
  9. ACETYL SALICYLIC ACID USP BAT [Concomitant]
  10. BEXTRA [Concomitant]
  11. CELECOXIB [Concomitant]
  12. ROFECOXIB [Concomitant]
  13. TOCOPHEROL CONCENTRATE CAP [Concomitant]
  14. CYANOCOBALAMIN [Concomitant]
  15. MULTI-VITAMINS [Concomitant]

REACTIONS (4)
  - CHEST DISCOMFORT [None]
  - EAR PAIN [None]
  - PAIN IN JAW [None]
  - TENDERNESS [None]
